FAERS Safety Report 7365008-5 (Version None)
Quarter: 2011Q1

REPORT INFORMATION
  Report Type: 
  Country: None (occurrence: None)
  Receive Date: 20110321
  Receipt Date: 20110311
  Transmission Date: 20110831
  Serious: Yes (Hospitalization)
  Sender: FDA-Public Use
  Company Number: US-ASTRAZENECA-2011SE13740

PATIENT
  Age: 37 Year
  Sex: Female

DRUGS (5)
  1. PROPRANOLOL [Suspect]
     Route: 065
  2. KEPPRA [Suspect]
     Route: 065
  3. SEROQUEL [Suspect]
     Route: 048
  4. CITRALINE [Suspect]
     Route: 065
  5. ALCOHOL [Suspect]
     Route: 065

REACTIONS (2)
  - ELECTROCARDIOGRAM QT PROLONGED [None]
  - OVERDOSE [None]
